FAERS Safety Report 20174406 (Version 2)
Quarter: 2022Q1

REPORT INFORMATION
  Report Type: Report from Study
  Country: US (occurrence: US)
  Receive Date: 20211213
  Receipt Date: 20220124
  Transmission Date: 20220423
  Serious: Yes (Death, Other)
  Sender: FDA-Public Use
  Company Number: US-UCBSA-2021056823

PATIENT
  Age: 79 Year
  Sex: Male

DRUGS (1)
  1. LACOSAMIDE [Suspect]
     Active Substance: LACOSAMIDE
     Indication: Seizure
     Dosage: 200 MILLIGRAM, 2X/DAY (BID)
     Dates: end: 20211028

REACTIONS (4)
  - Death [Fatal]
  - Epilepsy [Unknown]
  - Dementia Alzheimer^s type [Unknown]
  - Respiratory distress [Unknown]

NARRATIVE: CASE EVENT DATE: 20211028
